FAERS Safety Report 13526641 (Version 1)
Quarter: 2017Q2

REPORT INFORMATION
  Report Type: Other
  Country: CZ (occurrence: CZ)
  Receive Date: 20170509
  Receipt Date: 20170509
  Transmission Date: 20170830
  Serious: Yes (Death, Hospitalization, Other)
  Sender: FDA-Public Use
  Company Number: CZ-HETERO LABS LTD-2020440

PATIENT
  Sex: Female

DRUGS (3)
  1. TELMISARTAN AND HYDROCHLOROTHIAZIDE [Suspect]
     Active Substance: HYDROCHLOROTHIAZIDE\TELMISARTAN
     Route: 065
  2. TELMISARTAN. [Suspect]
     Active Substance: TELMISARTAN
     Indication: HYPERTENSION
     Route: 065
  3. METFORMIN [Suspect]
     Active Substance: METFORMIN HYDROCHLORIDE
     Route: 065

REACTIONS (9)
  - Nervous system disorder [Unknown]
  - Sepsis [Fatal]
  - Fluid intake reduced [Unknown]
  - Oliguria [Unknown]
  - Back pain [Unknown]
  - Anaemia [Unknown]
  - Diarrhoea [Unknown]
  - Lactic acidosis [Unknown]
  - Hypotension [Unknown]
